FAERS Safety Report 5605098-0 (Version None)
Quarter: 2008Q1

REPORT INFORMATION
  Report Type: 
  Country: None (occurrence: None)
  Receive Date: 20080128
  Receipt Date: 20080121
  Transmission Date: 20080703
  Serious: Yes (Hospitalization)
  Sender: FDA-Public Use
  Company Number: JP-MERCK-0801USA04618

PATIENT
  Age: 46 Year
  Sex: Male

DRUGS (3)
  1. VASOTEC [Suspect]
     Indication: CARDIOPLEGIA
     Route: 048
     Dates: start: 20080110
  2. PLAVIX [Suspect]
     Indication: CARDIOPLEGIA
     Route: 048
     Dates: start: 20080110
  3. PEPCID [Suspect]
     Indication: PROPHYLAXIS AGAINST GASTROINTESTINAL ULCER
     Route: 048
     Dates: start: 20080110, end: 20080116

REACTIONS (1)
  - ATRIOVENTRICULAR BLOCK COMPLETE [None]
